FAERS Safety Report 12878380 (Version 3)
Quarter: 2016Q4

REPORT INFORMATION
  Report Type: Report from Study
  Country: FR (occurrence: FR)
  Receive Date: 20161024
  Receipt Date: 20161214
  Transmission Date: 20170207
  Serious: Yes (Hospitalization)
  Sender: FDA-Public Use
  Company Number: FR-BAYER-2016-199089

PATIENT
  Age: 57 Year
  Sex: Female
  Weight: 45 kg

DRUGS (3)
  1. STIVARGA [Suspect]
     Active Substance: REGORAFENIB
     Indication: RECTOSIGMOID CANCER STAGE III
     Dosage: 80MG DAILY (2 TABLETS OF 40MG)
     Route: 048
     Dates: start: 20160802
  2. STIVARGA [Suspect]
     Active Substance: REGORAFENIB
     Indication: RECTOSIGMOID CANCER STAGE III
     Dosage: 160 MG (4 TABLETS AT 40 MG)
     Dates: start: 20160623, end: 20160706
  3. TRAMADOL. [Concomitant]
     Active Substance: TRAMADOL
     Dosage: 50 MG, UNK
     Dates: start: 20160709, end: 20160719

REACTIONS (1)
  - Purpura [Recovered/Resolved]

NARRATIVE: CASE EVENT DATE: 20160709
